FAERS Safety Report 7364274-X (Version None)
Quarter: 2011Q1

REPORT INFORMATION
  Report Type: 
  Country: None (occurrence: None)
  Receive Date: 20110321
  Receipt Date: 20110314
  Transmission Date: 20110831
  Serious: Yes (Hospitalization)
  Sender: FDA-Public Use
  Company Number: B0694112A

PATIENT
  Sex: Female

DRUGS (6)
  1. BURINEX [Suspect]
     Dosage: 1MG PER DAY
     Route: 065
  2. SPIRIX [Suspect]
     Dosage: 25MG PER DAY
     Route: 065
  3. ABILIFY [Suspect]
     Indication: BIPOLAR DISORDER
     Route: 065
  4. CIPRALEX [Suspect]
     Indication: BIPOLAR DISORDER
     Dosage: 20MG PER DAY
     Route: 065
  5. WARFARIN SODIUM [Concomitant]
  6. LAMICTAL [Suspect]
     Route: 065

REACTIONS (3)
  - BLOOD OSMOLARITY DECREASED [None]
  - HYPONATRAEMIA [None]
  - HYPOKALAEMIA [None]
